FAERS Safety Report 7235970-X (Version None)
Quarter: 2011Q1

REPORT INFORMATION
  Report Type: 
  Country: None (occurrence: None)
  Receive Date: 20110120
  Receipt Date: 20110112
  Transmission Date: 20110831
  Serious: Yes (Hospitalization)
  Sender: FDA-Public Use
  Company Number: B0682829A

PATIENT
  Sex: Male

DRUGS (8)
  1. BACTRIM DS [Suspect]
     Dosage: 3TAB WEEKLY
     Route: 048
     Dates: start: 20100920
  2. VELCADE [Concomitant]
     Indication: MULTIPLE MYELOMA
     Dosage: 3.5MG TWO TIMES PER WEEK
     Route: 042
     Dates: start: 20100920, end: 20101001
  3. ZELITREX [Suspect]
     Dosage: 500MG TWICE PER DAY
     Route: 048
     Dates: start: 20100920
  4. EFFERALGAN [Concomitant]
     Dosage: 1G THREE TIMES PER DAY
     Route: 048
     Dates: start: 20101005
  5. ALKERAN [Concomitant]
     Route: 042
     Dates: start: 20100920, end: 20101004
  6. SOLUPRED [Concomitant]
     Route: 065
     Dates: start: 20100920, end: 20101004
  7. AUGMENTIN [Suspect]
     Dosage: 1G THREE TIMES PER DAY
     Route: 048
     Dates: start: 20101005, end: 20101011
  8. CIFLOX [Suspect]
     Dosage: 500MG TWICE PER DAY
     Route: 048
     Dates: start: 20101005, end: 20101011

REACTIONS (2)
  - RASH MACULO-PAPULAR [None]
  - PRURITUS [None]
